FAERS Safety Report 5418333-9 (Version None)
Quarter: 2007Q3

REPORT INFORMATION
  Report Type: 
  Country: None (occurrence: None)
  Receive Date: 20070817
  Receipt Date: 20070817
  Transmission Date: 20080115
  Serious: Yes (Other)
  Sender: FDA-Public Use
  Company Number: A0670811A

PATIENT

DRUGS (1)
  1. ALLI [Suspect]
     Indication: DRUG USE FOR UNKNOWN INDICATION
     Route: 048
     Dates: start: 20070601

REACTIONS (9)
  - ARTHRALGIA [None]
  - ARTHRITIS [None]
  - DEFAECATION URGENCY [None]
  - DEPRESSION [None]
  - FEELING ABNORMAL [None]
  - HEADACHE [None]
  - RECTAL DISCHARGE [None]
  - SUICIDAL IDEATION [None]
  - VOMITING [None]
